FAERS Safety Report 8079679-1 (Version None)
Quarter: 2012Q1

REPORT INFORMATION
  Report Type: 
  Country: None (occurrence: None)
  Receive Date: 20120128
  Receipt Date: 20110811
  Transmission Date: 20120608
  Serious: No
  Sender: FDA-Public Use
  Company Number: US-ABBOTT-11P-163-0845756-00

PATIENT
  Age: 44 Year
  Sex: Male

DRUGS (3)
  1. TRAMADOL HCL [Concomitant]
     Indication: PAIN
  2. PREDNISONE TAB [Concomitant]
     Indication: PRODUCT USED FOR UNKNOWN INDICATION
     Dosage: WITH TAPERING DOSE, DAILY
  3. HUMIRA [Suspect]
     Indication: CROHN'S DISEASE
     Dosage: QOW, AFTER LOADING DOSES
     Dates: start: 20110714

REACTIONS (5)
  - CONTUSION [None]
  - LACERATION [None]
  - MELANOCYTIC NAEVUS [None]
  - PAIN [None]
  - FALL [None]
